FAERS Safety Report 6439843-1 (Version None)
Quarter: 2009Q4

REPORT INFORMATION
  Report Type: 
  Country: None (occurrence: None)
  Receive Date: 20091113
  Receipt Date: 20091111
  Transmission Date: 20100525
  Serious: Yes (Hospitalization, Other)
  Sender: FDA-Public Use
  Company Number: US-RB-023958-09

PATIENT
  Age: 48 Year
  Sex: Female

DRUGS (2)
  1. SUBOXONE [Suspect]
     Route: 060
     Dates: start: 20090501
  2. HORMONE REPLACEMENT THERAPY [Suspect]
     Indication: MENOPAUSE
     Dosage: DOSE UNKNOWN
     Route: 065
     Dates: end: 20090514

REACTIONS (1)
  - PULMONARY EMBOLISM [None]
